FAERS Safety Report 19397175 (Version 1)
Quarter: 2021Q2

REPORT INFORMATION
  Report Type: Report from Study
  Country: US (occurrence: US)
  Receive Date: 20210609
  Receipt Date: 20210609
  Transmission Date: 20210717
  Serious: Yes (Death, Hospitalization)
  Sender: FDA-Public Use
  Company Number: US-ROCHE-2240683

PATIENT
  Age: 77 Year
  Sex: Female
  Weight: 46.72 kg

DRUGS (10)
  1. ATORVASTATIN [Concomitant]
     Active Substance: ATORVASTATIN
  2. VALSARTAN. [Concomitant]
     Active Substance: VALSARTAN
  3. ONDANSETRON [Concomitant]
     Active Substance: ONDANSETRON
  4. NIFEDIPINE. [Concomitant]
     Active Substance: NIFEDIPINE
  5. ATEZOLIZUMAB. [Suspect]
     Active Substance: ATEZOLIZUMAB
     Indication: OVARIAN CANCER
     Dosage: ON, 20/DEC/2018, SHE RECEIVED LAST DOSE OF ATEZOLIZUMAB (TOTAL DOSE ADMINISTERED THIS COURSE (1600 M
     Route: 041
     Dates: start: 20181206
  6. METFORMIN [Concomitant]
     Active Substance: METFORMIN HYDROCHLORIDE
  7. FLUTICASONE PROPIONATE. [Concomitant]
     Active Substance: FLUTICASONE PROPIONATE
  8. OMEPRAZOLE. [Concomitant]
     Active Substance: OMEPRAZOLE
  9. PEGYLATED LIPOSOMAL DOXORUBICIN [Suspect]
     Active Substance: DOXORUBICIN
     Indication: OVARIAN CANCER
     Dosage: TOTAL DOSE ADMINISTERED ON 23/DEC/2018 WAS 56.8 MG
     Route: 042
     Dates: start: 20181206
  10. ALBUTEROL. [Concomitant]
     Active Substance: ALBUTEROL

REACTIONS (1)
  - Intestinal perforation [Fatal]

NARRATIVE: CASE EVENT DATE: 20181223
